FAERS Safety Report 23324851 (Version 1)
Quarter: 2023Q4

REPORT INFORMATION
  Report Type: Spontaneous
  Country: IN (occurrence: IN)
  Receive Date: 20231221
  Receipt Date: 20231221
  Transmission Date: 20240110
  Serious: Yes (Other)
  Sender: FDA-Public Use
  Company Number: IN-CIPLA LTD.-2023IN07971

PATIENT

DRUGS (4)
  1. ATORVASTATIN [Suspect]
     Active Substance: ATORVASTATIN
     Indication: Coronary artery disease
     Dosage: UNK
     Route: 065
  2. ASPIRIN [Suspect]
     Active Substance: ASPIRIN
     Indication: Coronary artery disease
     Dosage: UNK
     Route: 065
  3. CLOPIDOGREL [Suspect]
     Active Substance: CLOPIDOGREL BISULFATE
     Indication: Coronary artery disease
     Dosage: UNK
     Route: 065
  4. BISOPROLOL [Suspect]
     Active Substance: BISOPROLOL\BISOPROLOL FUMARATE
     Indication: Coronary artery disease
     Dosage: UNK
     Route: 065

REACTIONS (2)
  - Stillbirth [Unknown]
  - Exposure during pregnancy [Unknown]
